FAERS Safety Report 8263326-X (Version None)
Quarter: 2012Q1

REPORT INFORMATION
  Report Type: 
  Country: None (occurrence: None)
  Receive Date: 20120327
  Receipt Date: 20110421
  Transmission Date: 20120608
  Serious: Yes (Other)
  Sender: FDA-Public Use
  Company Number: PHHY2011US34856

PATIENT
  Age: 56 Year
  Sex: Female

DRUGS (2)
  1. GLEEVEC [Suspect]
     Dosage: 400 MG, QD ; 300 MG, QD
  2. ALFERON N [Suspect]

REACTIONS (11)
  - SINUSITIS [None]
  - PAIN IN EXTREMITY [None]
  - SWELLING [None]
  - HEADACHE [None]
  - EYE HAEMORRHAGE [None]
  - DREAMY STATE [None]
  - ALOPECIA [None]
  - RASH [None]
  - VASODILATATION [None]
  - NAUSEA [None]
  - OEDEMA PERIPHERAL [None]
